FAERS Safety Report 9461605 (Version 3)
Quarter: 2013Q4

REPORT INFORMATION
  Report Type: Spontaneous
  Country: DE (occurrence: DE)
  Receive Date: 20130816
  Receipt Date: 20131010
  Transmission Date: 20140711
  Serious: Yes (Hospitalization)
  Sender: FDA-Public Use
  Company Number: DE-UCBSA-094968

PATIENT
  Age: 55 Year
  Sex: Female
  Weight: 69 kg

DRUGS (11)
  1. CIMZIA [Suspect]
     Indication: RHEUMATOID ARTHRITIS
     Dosage: DOSE: 2 INJECTIONS EVERY TWO WEEKS
     Route: 058
     Dates: end: 2013
  2. CIMZIA [Suspect]
     Indication: RHEUMATOID ARTHRITIS
     Dosage: DOSE: EVERY TWO WEEKS 1 INJECTION
     Route: 058
     Dates: start: 20130610
  3. MTX [Concomitant]
     Dosage: DOSE:EVERY MONDAY 15 MG HEXAL INJECETION
     Route: 058
  4. FOLCUR [Concomitant]
     Dosage: DOSE: 3 TABLETS EVERY WEDNESDAY
  5. CALCIUM-SANDOZ D OSTEO [Concomitant]
     Dosage: DOSE: ONCE IN MORNING AND ONCE IN EVENING
  6. PANTOPRAZOL-CT [Concomitant]
     Dosage: DOSE: 20MG (ONCE IN MORNING)
  7. ARCOXIA [Concomitant]
     Dosage: DOSE: 90 MG (IN EVENING)
  8. RAMIPRIL ABZ [Concomitant]
     Dosage: DOSE: 10 MG (IN MORNING)
  9. CORTIM FORTE RATIO [Concomitant]
     Dosage: DOSE: 960 MG - MONDAY/WEDNESDAY/FRIDAY ONE TABLET
  10. AMPHO MORONAL [Concomitant]
     Dosage: DOSE: ONCE IN MORNING, NOON AND EVENING
  11. PREDNI H TABLINEN [Concomitant]
     Dosage: DOSE:20MG

REACTIONS (5)
  - Hypersensitivity [Unknown]
  - Subcorneal pustular dermatosis [Not Recovered/Not Resolved]
  - Pain [Unknown]
  - Fatigue [Unknown]
  - Pruritus genital [Unknown]
